FAERS Safety Report 16409854 (Version 2)
Quarter: 2019Q3

REPORT INFORMATION
  Report Type: Spontaneous
  Country: US (occurrence: US)
  Receive Date: 20190610
  Receipt Date: 20190703
  Transmission Date: 20191004
  Serious: Yes (Other)
  Sender: FDA-Public Use
  Company Number: US-PFIZER INC-2019245691

PATIENT
  Age: 72 Year
  Sex: Male
  Weight: 99.34 kg

DRUGS (1)
  1. BOSUTINIB [Suspect]
     Active Substance: BOSUTINIB
     Indication: CHRONIC MYELOID LEUKAEMIA
     Dosage: 500 MG, DAILY
     Route: 048
     Dates: start: 201811, end: 201903

REACTIONS (1)
  - Pulmonary hypertension [Recovering/Resolving]

NARRATIVE: CASE EVENT DATE: 201902
